FAERS Safety Report 5554042-3 (Version None)
Quarter: 2007Q4

REPORT INFORMATION
  Report Type: 
  Country: None (occurrence: None)
  Receive Date: 20071212
  Receipt Date: 20071212
  Transmission Date: 20080405
  Serious: No
  Sender: FDA-Public Use
  Company Number: None

PATIENT
  Sex: Male
  Weight: 102.0593 kg

DRUGS (4)
  1. DIAZEPAM [Suspect]
     Indication: CONVULSION
     Dosage: 20 MG EVERY 3 HOURS
  2. DIAZEPAM [Suspect]
     Indication: MUSCLE SPASMS
     Dosage: 20 MG EVERY 3 HOURS
  3. VALIUM [Suspect]
     Indication: CONVULSION
  4. VALIUM [Suspect]
     Indication: MUSCLE SPASMS

REACTIONS (5)
  - DYSPEPSIA [None]
  - GASTROOESOPHAGEAL REFLUX DISEASE [None]
  - NAUSEA [None]
  - URTICARIA [None]
  - VOMITING [None]
